FAERS Safety Report 20839596 (Version 1)
Quarter: 2022Q2

REPORT INFORMATION
  Report Type: Spontaneous
  Country: US (occurrence: US)
  Receive Date: 20220517
  Receipt Date: 20220517
  Transmission Date: 20220721
  Serious: No
  Sender: FDA-Public Use
  Company Number: US-PFIZER INC-202200685380

PATIENT
  Age: 44 Year
  Sex: Male

DRUGS (2)
  1. PAXLOVID [Suspect]
     Active Substance: NIRMATRELVIR\RITONAVIR
     Indication: COVID-19 treatment
     Dosage: UNK
     Dates: start: 20220427, end: 20220501
  2. BUPROPION [Concomitant]
     Active Substance: BUPROPION
     Dosage: UNK, (EXTENDED RELEASE)

REACTIONS (5)
  - COVID-19 [Not Recovered/Not Resolved]
  - Rhinorrhoea [Unknown]
  - Head discomfort [Unknown]
  - Cough [Unknown]
  - Fatigue [Unknown]

NARRATIVE: CASE EVENT DATE: 20220507
